FAERS Safety Report 23491261 (Version 2)
Quarter: 2024Q1

REPORT INFORMATION
  Report Type: Spontaneous
  Country: CA (occurrence: CA)
  Receive Date: 20240207
  Receipt Date: 20240212
  Transmission Date: 20240410
  Serious: Yes (Hospitalization, Other)
  Sender: FDA-Public Use
  Company Number: CA-CELLTRION INC.-2024CA002331

PATIENT

DRUGS (36)
  1. RITUXIMAB [Suspect]
     Active Substance: RITUXIMAB
     Indication: Rheumatoid arthritis
     Route: 042
  2. ACTEMRA [Suspect]
     Active Substance: TOCILIZUMAB
     Indication: Rheumatoid arthritis
     Dosage: UNK
     Route: 042
  3. ACTEMRA [Suspect]
     Active Substance: TOCILIZUMAB
     Dosage: UNK
     Route: 058
  4. BUDESONIDE [Suspect]
     Active Substance: BUDESONIDE
     Indication: Product used for unknown indication
     Route: 065
  5. ENBREL [Suspect]
     Active Substance: ETANERCEPT
     Indication: Rheumatoid arthritis
     Route: 058
  6. HUMIRA [Suspect]
     Active Substance: ADALIMUMAB
     Indication: Rheumatoid arthritis
     Route: 058
  7. HYDROXYCHLOROQUINE SULFATE [Suspect]
     Active Substance: HYDROXYCHLOROQUINE SULFATE
     Indication: Rheumatoid arthritis
     Route: 048
  8. LEFLUNOMIDE [Suspect]
     Active Substance: LEFLUNOMIDE
     Indication: Rheumatoid arthritis
     Dosage: 10.0 MILLIGRAM, 1 EVERY 1 DAYS
     Route: 048
  9. LENALIDOMIDE [Suspect]
     Active Substance: LENALIDOMIDE
     Indication: Rheumatoid arthritis
     Route: 048
  10. MAGNESIUM OXIDE [Suspect]
     Active Substance: MAGNESIUM OXIDE
     Indication: Product used for unknown indication
     Route: 065
  11. METHOTREXATE SODIUM [Suspect]
     Active Substance: METHOTREXATE SODIUM
     Indication: Rheumatoid arthritis
     Dosage: UNK
     Route: 065
  12. METHOTREXATE SODIUM [Suspect]
     Active Substance: METHOTREXATE SODIUM
     Dosage: UNK
     Route: 065
  13. ORENCIA [Suspect]
     Active Substance: ABATACEPT
     Indication: Rheumatoid arthritis
     Dosage: 25.0 MILLIGRAM, 1 EVERY 1 WEEKS
     Route: 042
  14. ORENCIA [Suspect]
     Active Substance: ABATACEPT
     Dosage: UNK
     Route: 065
  15. PERIOGARD [Suspect]
     Active Substance: CHLORHEXIDINE GLUCONATE
     Indication: Product used for unknown indication
     Route: 065
  16. REMICADE [Suspect]
     Active Substance: INFLIXIMAB
     Indication: Crohn^s disease
     Dosage: 5 MG/KG, 1 EVERY 1 DAYS
     Route: 042
  17. XELJANZ [Suspect]
     Active Substance: TOFACITINIB CITRATE
     Indication: Rheumatoid arthritis
     Route: 065
  18. XELJANZ [Suspect]
     Active Substance: TOFACITINIB CITRATE
     Dosage: 5.0 MILLIGRAM, 1 EVERY 12 HOURS
     Route: 048
  19. ACTEMRA [Concomitant]
     Active Substance: TOCILIZUMAB
  20. ALENDRONATE SODIUM [Concomitant]
     Active Substance: ALENDRONATE SODIUM
  21. AMLODIPINE BESYLATE [Concomitant]
     Active Substance: AMLODIPINE BESYLATE
  22. ARAVA [Concomitant]
     Active Substance: LEFLUNOMIDE
  23. ATENOLOL [Concomitant]
     Active Substance: ATENOLOL
  24. CODEINE [Concomitant]
     Active Substance: CODEINE
     Route: 065
  25. CYANOCOBALAMIN [Concomitant]
     Active Substance: CYANOCOBALAMIN
  26. ERGOCALCIFEROL [Concomitant]
     Active Substance: ERGOCALCIFEROL
  27. GOLD [Concomitant]
     Active Substance: GOLD
     Dosage: UNK
  28. IRON [Concomitant]
     Active Substance: IRON
  29. LYRICA [Concomitant]
     Active Substance: PREGABALIN
  30. PRAMIPEXOLE [Concomitant]
     Active Substance: PRAMIPEXOLE\PRAMIPEXOLE DIHYDROCHLORIDE
  31. PREDNISONE [Concomitant]
     Active Substance: PREDNISONE
  32. PROPRANOLOL [Concomitant]
     Active Substance: PROPRANOLOL HYDROCHLORIDE
  33. RAMIPRIL [Concomitant]
     Active Substance: RAMIPRIL
     Route: 065
  34. SERTRALINE [Concomitant]
     Active Substance: SERTRALINE HYDROCHLORIDE
  35. SIMPONI [Concomitant]
     Active Substance: GOLIMUMAB
  36. TRAZODONE [Concomitant]
     Active Substance: TRAZODONE HYDROCHLORIDE

REACTIONS (22)
  - Arthritis [Unknown]
  - Arthropathy [Unknown]
  - C-reactive protein increased [Unknown]
  - Condition aggravated [Unknown]
  - Hepatic enzyme increased [Unknown]
  - Insomnia [Unknown]
  - Joint swelling [Unknown]
  - Loss of personal independence in daily activities [Unknown]
  - Pulmonary fibrosis [Unknown]
  - Red blood cell sedimentation rate increased [Unknown]
  - Rheumatoid arthritis [Unknown]
  - Rheumatoid factor positive [Unknown]
  - Synovitis [Unknown]
  - Abdominal pain [Unknown]
  - Arthralgia [Unknown]
  - Drug hypersensitivity [Unknown]
  - Headache [Unknown]
  - Hypertension [Unknown]
  - Infusion related reaction [Unknown]
  - Pneumonia [Unknown]
  - Drug ineffective [Unknown]
  - Treatment failure [Unknown]
